FAERS Safety Report 9924429 (Version 1)
Quarter: 2014Q1

REPORT INFORMATION
  Report Type: Spontaneous
  Country: US (occurrence: None)
  Receive Date: 20140224
  Receipt Date: 20140224
  Transmission Date: 20141002
  Serious: Yes (Life-Threatening, Hospitalization, Other)
  Sender: FDA-Public Use
  Company Number: None

PATIENT
  Age: 49 Year
  Sex: Female
  Weight: 79.83 kg

DRUGS (2)
  1. GENERESS FE (WATSON LABORATORIES) [Suspect]
     Indication: UTERINE LEIOMYOMA
     Dosage: 1 PILL ONCEW DAILY
     Route: 048
     Dates: start: 20140124, end: 20140211
  2. GENERESS FE (WATSON LABORATORIES) [Suspect]
     Indication: MENORRHAGIA
     Dosage: 1 PILL ONCEW DAILY
     Route: 048
     Dates: start: 20140124, end: 20140211

REACTIONS (9)
  - Headache [None]
  - Menorrhagia [None]
  - Anaemia [None]
  - Deep vein thrombosis [None]
  - Pleuritic pain [None]
  - Pneumonitis [None]
  - Pulmonary infarction [None]
  - Abasia [None]
  - Pulmonary embolism [None]
